FAERS Safety Report 13125061 (Version 1)
Quarter: 2017Q1

REPORT INFORMATION
  Report Type: Spontaneous
  Country: US (occurrence: US)
  Receive Date: 20170118
  Receipt Date: 20170118
  Transmission Date: 20170428
  Serious: No
  Sender: FDA-Public Use
  Company Number: US-ASTRAZENECA-2017SE02944

PATIENT
  Age: 17203 Day
  Sex: Female
  Weight: 97.5 kg

DRUGS (3)
  1. ZOLADEX [Suspect]
     Active Substance: GOSERELIN ACETATE
     Indication: BREAST CANCER FEMALE
     Route: 058
     Dates: start: 20160607
  2. AROMASIN [Concomitant]
     Active Substance: EXEMESTANE
     Indication: BREAST CANCER FEMALE
     Route: 048
     Dates: start: 20160621
  3. ARMOUR THYROID [Concomitant]
     Active Substance: THYROID, PORCINE
     Route: 048

REACTIONS (6)
  - Injection site haemorrhage [Not Recovered/Not Resolved]
  - Circumstance or information capable of leading to medication error [Unknown]
  - Injection site bruising [Not Recovered/Not Resolved]
  - Device malfunction [Unknown]
  - Yellow skin [Recovered/Resolved]
  - Malaise [Recovered/Resolved]

NARRATIVE: CASE EVENT DATE: 20160607
